FAERS Safety Report 9970653 (Version 1)
Quarter: 2014Q1

REPORT INFORMATION
  Report Type: Spontaneous
  Country: US (occurrence: None)
  Receive Date: 20140304
  Receipt Date: 20140304
  Transmission Date: 20141002
  Serious: No
  Sender: FDA-Public Use
  Company Number: 2014P1001507

PATIENT
  Sex: 0

DRUGS (1)
  1. MYORISAN [Suspect]
     Indication: ACNE
     Route: 048
     Dates: start: 20131212, end: 20140214

REACTIONS (3)
  - Mood altered [None]
  - Depression [None]
  - Abnormal dreams [None]
